FAERS Safety Report 9012827 (Version 3)
Quarter: 2013Q3

REPORT INFORMATION
  Report Type: Report from Study
  Country: DE (occurrence: DE)
  Receive Date: 20130114
  Receipt Date: 20130823
  Transmission Date: 20140515
  Serious: Yes (Hospitalization, Other)
  Sender: FDA-Public Use
  Company Number: DE-TEVA-379672GER

PATIENT
  Age: 47 Year
  Sex: Female
  Weight: 63 kg

DRUGS (8)
  1. MYOCET [Suspect]
     Indication: BREAST CANCER
     Route: 042
     Dates: start: 20121001
  2. PACLITAXEL [Suspect]
     Indication: BREAST CANCER
     Route: 042
     Dates: start: 20121001
  3. BEVACIZUMAB [Suspect]
     Indication: BREAST CANCER
     Route: 042
     Dates: start: 20121001
  4. ONDANSETRON [Concomitant]
     Dates: start: 20121002, end: 201212
  5. OMEPRAZOLE [Concomitant]
     Dosage: 40 MILLIGRAM DAILY;
     Dates: start: 20121112
  6. IBUPROFEN [Concomitant]
     Dosage: 800 MILLIGRAM DAILY;
     Dates: start: 20121015
  7. DEXAMETHASONE [Concomitant]
     Dosage: 4 MILLIGRAM DAILY;
     Dates: start: 20121002, end: 201212
  8. ECURAL FETTCREME [Concomitant]
     Dates: start: 20121126

REACTIONS (6)
  - Body temperature increased [Recovered/Resolved]
  - Fatigue [Recovered/Resolved]
  - Candida infection [Unknown]
  - Urinary tract infection [Recovered/Resolved]
  - Device related infection [Recovered/Resolved]
  - Pericarditis [Not Recovered/Not Resolved]
